FAERS Safety Report 21523855 (Version 1)
Quarter: 2022Q4

REPORT INFORMATION
  Report Type: Spontaneous
  Country: US (occurrence: US)
  Receive Date: 20221029
  Receipt Date: 20221029
  Transmission Date: 20230112
  Serious: Yes (Disabling, Other)
  Sender: FDA-Public Use
  Company Number: US-TEVA-2022-US-2820212

PATIENT
  Age: 77 Year
  Sex: Female
  Weight: 99.79 kg

DRUGS (3)
  1. ESTRADIOL [Suspect]
     Active Substance: ESTRADIOL
     Indication: Product used for unknown indication
     Route: 048
     Dates: start: 2022
  2. ESTRADIOL [Suspect]
     Active Substance: ESTRADIOL
     Dates: start: 1997
  3. DEPO-ESTRADIOL [Suspect]
     Active Substance: ESTRADIOL CYPIONATE
     Indication: Product used for unknown indication
     Dates: start: 1997

REACTIONS (9)
  - Mental impairment [Unknown]
  - Drug dependence [Unknown]
  - Disability [Unknown]
  - Hot flush [Unknown]
  - Gait disturbance [Unknown]
  - Drug ineffective [Unknown]
  - Adverse event [Unknown]
  - Product availability issue [Unknown]
  - Overweight [Unknown]
